FAERS Safety Report 8202816-2 (Version None)
Quarter: 2012Q1

REPORT INFORMATION
  Report Type: 
  Country: None (occurrence: None)
  Receive Date: 20120312
  Receipt Date: 20120312
  Transmission Date: 20120608
  Serious: Yes (Hospitalization)
  Sender: FDA-Public Use
  Company Number: None

PATIENT
  Sex: Female
  Weight: 61.2 kg

DRUGS (1)
  1. METFORMIN HCL [Suspect]
     Indication: TYPE 2 DIABETES MELLITUS
     Dosage: 1000MG
     Route: 048

REACTIONS (7)
  - LACTIC ACIDOSIS [None]
  - LETHARGY [None]
  - HYPOTHERMIA [None]
  - MALAISE [None]
  - HYPOTENSION [None]
  - ANURIA [None]
  - DECREASED APPETITE [None]
